FAERS Safety Report 9842253 (Version 2)
Quarter: 2014Q1

REPORT INFORMATION
  Report Type: Spontaneous
  Country: BR (occurrence: BR)
  Receive Date: 20140124
  Receipt Date: 20140213
  Transmission Date: 20141002
  Serious: Yes (Other)
  Sender: FDA-Public Use
  Company Number: BR-ABBVIE-14P-020-1193866-00

PATIENT
  Age: 16 Year
  Sex: Male

DRUGS (11)
  1. DEPAKENE [Suspect]
     Indication: INFANTILE SPASMS
     Dosage: 5 CAPSULES PER DAY
     Route: 048
  2. DEPAKENE [Suspect]
     Indication: DISTURBANCE IN ATTENTION
  3. DEPAKENE [Suspect]
     Indication: IMPAIRED REASONING
  4. GARDENAL [Concomitant]
     Indication: CONVULSION
     Dosage: AT NIGHT
     Route: 048
     Dates: start: 1999
  5. TOPIRAMATE [Concomitant]
     Indication: CONVULSION
     Dosage: IN THE MORNING/ AT NIGHT
     Route: 048
     Dates: start: 2010
  6. TOPIRAMATE [Concomitant]
     Dosage: IN THE MORNING
     Route: 048
  7. KEPPRA [Concomitant]
     Indication: CONVULSION
     Dosage: 1 TABLET AND HALF (MORNING/NIGHT)
     Route: 048
     Dates: start: 2013
  8. METICORTEN [Concomitant]
     Indication: CONVULSION
     Route: 048
     Dates: start: 2011
  9. OMEPRAZOLE [Concomitant]
     Indication: GASTRIC DISORDER
     Route: 048
     Dates: start: 2011
  10. OMEPRAZOLE [Concomitant]
     Indication: PROPHYLAXIS
  11. OMEPRAZOLE [Concomitant]
     Indication: PROPHYLAXIS

REACTIONS (5)
  - Convulsion [Not Recovered/Not Resolved]
  - Convulsion [Recovered/Resolved]
  - Drug ineffective [Unknown]
  - Product physical issue [Unknown]
  - Poor quality drug administered [Unknown]
